FAERS Safety Report 9276740 (Version 1)
Quarter: 2013Q2

REPORT INFORMATION
  Report Type: Spontaneous
  Country: US (occurrence: None)
  Receive Date: 20130501
  Receipt Date: 20130501
  Transmission Date: 20140414
  Serious: Yes (Other)
  Sender: FDA-Public Use
  Company Number: AUR-APL-2013-03393

PATIENT
  Age: 53 Year
  Sex: Female

DRUGS (7)
  1. LISINOPRIL+HYDROCHLOROTHIAZIDE [Suspect]
     Indication: HEART RATE IRREGULAR
     Dosage: 20 OVER 25
     Route: 048
  2. ATENOLOL (ATENOLOL) [Suspect]
     Indication: HYPERTENSION
     Route: 048
  3. SEROQUEL (QUETIAPINE FUMARATE) [Suspect]
     Indication: BIPOLAR DISORDER
     Route: 048
     Dates: start: 201207, end: 20130131
  4. EFFEXOR (VENLAFAXINE) [Concomitant]
  5. LIPITOR (ATORVASTATIN CALCIUM) [Concomitant]
  6. LAMICTAL (LAMOTRIGINE) TABLET [Concomitant]
  7. ATIVAN (LORAZEPAM) [Concomitant]

REACTIONS (7)
  - Treatment noncompliance [None]
  - Drug administration error [None]
  - Major depression [None]
  - Tremor [None]
  - Visual impairment [None]
  - Insomnia [None]
  - Disturbance in attention [None]
